FAERS Safety Report 11002871 (Version 1)
Quarter: 2015Q2

REPORT INFORMATION
  Report Type: Spontaneous
  Country: PR (occurrence: PR)
  Receive Date: 20150408
  Receipt Date: 20150408
  Transmission Date: 20150821
  Serious: No
  Sender: FDA-Public Use
  Company Number: PR-BAXTER-2015BAX017442

PATIENT
  Age: 4 Day
  Sex: Male
  Weight: 1.2 kg

DRUGS (8)
  1. POTASSIUM CHLORIDE 0.4MEQ/ML [Suspect]
     Active Substance: POTASSIUM CHLORIDE
     Indication: NUTRITIONAL SUPPLEMENTATION
     Route: 065
     Dates: start: 20150328, end: 20150328
  2. PEDIATRIC INFUVITE MULTIPLE VITAMINS [Suspect]
     Active Substance: ALPHA-TOCOPHEROL ACETATE\ASCORBIC ACID\BIOTIN\CHOLECALCIFEROL\CYANOCOBALAMIN\DEXPANTHENOL\FOLIC ACID\NIACINAMIDE\PHYTONADIONE\PYRIDOXINE HYDROCHLORIDE\RIBOFLAVIN 5^-PHOSPHATE SODIUM\THIAMINE HYDROCHLORIDE\VITAMIN A PALMITATE
     Indication: NUTRITIONAL SUPPLEMENTATION
     Route: 065
     Dates: start: 20150328, end: 20150328
  3. 5% SODIUM CHLORIDE INJECTION [Suspect]
     Active Substance: SODIUM CHLORIDE
     Indication: NUTRITIONAL SUPPLEMENTATION
     Route: 065
     Dates: start: 20150328, end: 20150328
  4. K PHOSPHATE [Suspect]
     Active Substance: POTASSIUM PHOSPHATE
     Indication: NUTRITIONAL SUPPLEMENTATION
     Route: 065
     Dates: start: 20150328, end: 20150328
  5. CA GLUCONATE [Suspect]
     Active Substance: CALCIUM GLUCONATE
     Indication: NUTRITIONAL SUPPLEMENTATION
     Route: 065
     Dates: start: 20150328, end: 20150328
  6. STERILE WATER [Suspect]
     Active Substance: WATER
     Indication: NUTRITIONAL SUPPLEMENTATION
     Route: 065
     Dates: start: 20150328, end: 20150328
  7. 70% DEXTROSE INJECTION USP [Suspect]
     Active Substance: DEXTROSE
     Indication: NUTRITIONAL SUPPLEMENTATION
     Route: 065
     Dates: start: 20150328, end: 20150328
  8. 10% PREMASOL [Suspect]
     Active Substance: AMINO ACIDS
     Indication: NUTRITIONAL SUPPLEMENTATION
     Route: 065
     Dates: start: 20150328, end: 20150328

REACTIONS (2)
  - No adverse event [Recovered/Resolved]
  - Incorrect dose administered [Unknown]

NARRATIVE: CASE EVENT DATE: 20150328
